FAERS Safety Report 6225907-4 (Version None)
Quarter: 2009Q2

REPORT INFORMATION
  Report Type: 
  Country: None (occurrence: None)
  Receive Date: 20090612
  Receipt Date: 20090430
  Transmission Date: 20091009
  Serious: No
  Sender: FDA-Public Use
  Company Number: US-ABBOTT-09P-163-0571430-00

PATIENT
  Sex: Male

DRUGS (2)
  1. HUMIRA [Suspect]
     Indication: PSORIASIS
     Dosage: LOADING DOSE OF 80 MILLIGRAMS
     Route: 058
     Dates: start: 20090401, end: 20090401
  2. HUMIRA [Suspect]
     Route: 058
     Dates: start: 20090401

REACTIONS (1)
  - IRRITABILITY [None]
